FAERS Safety Report 20005642 (Version 1)
Quarter: 2021Q4

REPORT INFORMATION
  Report Type: Spontaneous
  Country: US (occurrence: US)
  Receive Date: 20211027
  Receipt Date: 20211027
  Transmission Date: 20220304
  Serious: Yes (Life-Threatening, Hospitalization, Other)
  Sender: FDA-Public Use
  Company Number: US-ALMIRALL, LLC-2021AQU000489

PATIENT
  Age: 55 Year
  Sex: Female

DRUGS (2)
  1. ACTICLATE [Suspect]
     Active Substance: DOXYCYCLINE HYCLATE
     Indication: Otitis media acute
     Dosage: UNK
  2. ACTICLATE [Suspect]
     Active Substance: DOXYCYCLINE HYCLATE
     Indication: Middle ear effusion

REACTIONS (2)
  - Meningitis streptococcal [Recovered/Resolved]
  - Treatment failure [Unknown]
